FAERS Safety Report 5426732-4 (Version None)
Quarter: 2007Q3

REPORT INFORMATION
  Report Type: 
  Country: None (occurrence: None)
  Receive Date: 20070827
  Receipt Date: 20070815
  Transmission Date: 20080115
  Serious: Yes (Life-Threatening, Hospitalization)
  Sender: FDA-Public Use
  Company Number: DE-PFIZER INC-2007051921

PATIENT
  Sex: Male
  Weight: 92 kg

DRUGS (1)
  1. SUTENT [Suspect]
     Indication: RENAL CELL CARCINOMA STAGE UNSPECIFIED
     Dates: start: 20070501, end: 20070509

REACTIONS (5)
  - BLOOD COUNT ABNORMAL [None]
  - INFECTION [None]
  - PYREXIA [None]
  - SKIN EXFOLIATION [None]
  - STOMATITIS [None]
